FAERS Safety Report 7157847-0 (Version None)
Quarter: 2010Q4

REPORT INFORMATION
  Report Type: 
  Country: None (occurrence: None)
  Receive Date: 20101214
  Receipt Date: 20101021
  Transmission Date: 20110411
  Serious: No
  Sender: FDA-Public Use
  Company Number: A0887974A

PATIENT
  Age: 73 Year
  Sex: Female

DRUGS (1)
  1. NICORETTE (MINT) [Suspect]
     Dates: start: 20101005, end: 20101019

REACTIONS (1)
  - ALOPECIA [None]
